FAERS Safety Report 14003338 (Version 1)
Quarter: 2017Q3

REPORT INFORMATION
  Report Type: Spontaneous
  Country: US (occurrence: US)
  Receive Date: 20170922
  Receipt Date: 20170922
  Transmission Date: 20171128
  Serious: Yes (Death)
  Sender: FDA-Public Use
  Company Number: US-ACTELION-A-NJ2017-159658

PATIENT
  Age: 20 Year
  Sex: Male

DRUGS (4)
  1. ZAVESCA [Suspect]
     Active Substance: MIGLUSTAT
     Indication: LIPID METABOLISM DISORDER
     Dosage: 200 MG, TID
     Route: 048
     Dates: start: 20150603, end: 20170912
  2. ZARONTIN [Concomitant]
     Active Substance: ETHOSUXIMIDE
     Dosage: 7.5 ML, TID
     Route: 048
     Dates: start: 20150217
  3. LAMICTAL [Concomitant]
     Active Substance: LAMOTRIGINE
     Dosage: UNK, QD
     Route: 048
     Dates: start: 20100823
  4. LAMICTAL [Concomitant]
     Active Substance: LAMOTRIGINE
     Dosage: 200 MG, BID
     Route: 048
     Dates: start: 20150217

REACTIONS (1)
  - Death [Fatal]
